FAERS Safety Report 12079600 (Version 1)
Quarter: 2016Q1

REPORT INFORMATION
  Report Type: Spontaneous
  Country: FR (occurrence: FR)
  Receive Date: 20160216
  Receipt Date: 20160216
  Transmission Date: 20160526
  Serious: Yes (Hospitalization)
  Sender: FDA-Public Use
  Company Number: FR-PFIZER INC-2016077847

PATIENT
  Age: 36 Year
  Sex: Female
  Weight: 66 kg

DRUGS (2)
  1. MIFEPRISTONE [Suspect]
     Active Substance: MIFEPRISTONE
     Indication: ABORTION INDUCED
     Dosage: 400 MG, SINGLE
     Route: 048
     Dates: start: 20160112, end: 20160112
  2. CYTOTEC [Suspect]
     Active Substance: MISOPROSTOL
     Indication: ABORTION INDUCED
     Dosage: 200 UG, 2X/DAY
     Route: 048
     Dates: start: 20160114, end: 20160114

REACTIONS (3)
  - Uterine haemorrhage [Unknown]
  - Shock [Unknown]
  - Drug ineffective for unapproved indication [Unknown]

NARRATIVE: CASE EVENT DATE: 201601
